FAERS Safety Report 8777277 (Version 5)
Quarter: 2013Q2

REPORT INFORMATION
  Report Type: Spontaneous
  Country: US (occurrence: US)
  Receive Date: 20120910
  Receipt Date: 20130529
  Transmission Date: 20140414
  Serious: Yes (Hospitalization, Other)
  Sender: FDA-Public Use
  Company Number: US-ASTRAZENECA-2012SE60524

PATIENT
  Age: 52 Year
  Sex: Male

DRUGS (7)
  1. SYMBICORT PMDI [Suspect]
     Dosage: UNKNOWN
     Route: 055
  2. SYMBICORT PMDI [Suspect]
     Dosage: 160/4.5 MCG, UNKNOWN
     Route: 055
  3. NEXIUM [Suspect]
     Route: 048
  4. SEROQUEL [Suspect]
     Route: 048
  5. TOPROL XL [Suspect]
     Route: 048
  6. PLAVIX [Concomitant]
  7. CARVEDILOL [Concomitant]

REACTIONS (7)
  - Cardiac disorder [Unknown]
  - Myocardial infarction [Unknown]
  - Renal failure [Unknown]
  - Neck pain [Unknown]
  - Back disorder [Unknown]
  - Tooth fracture [Unknown]
  - Hypertensive nephropathy [Unknown]
